FAERS Safety Report 7679692-X (Version None)
Quarter: 2011Q3

REPORT INFORMATION
  Report Type: 
  Country: None (occurrence: None)
  Receive Date: 20110812
  Receipt Date: 20110808
  Transmission Date: 20111222
  Serious: Yes (Congenital Anomaly, Other)
  Sender: FDA-Public Use
  Company Number: US-PFIZER INC-2011159723

PATIENT
  Sex: Female
  Weight: 2.96 kg

DRUGS (3)
  1. ZOLOFT [Suspect]
     Dosage: 100 MG, DAILY
     Route: 064
     Dates: start: 20060203
  2. ZOLOFT [Suspect]
     Dosage: 100 MG, DAILY
     Route: 064
     Dates: start: 20050823
  3. ZOLOFT [Suspect]
     Dosage: 150 MG, DAILY
     Route: 064
     Dates: start: 20060711

REACTIONS (11)
  - MATERNAL EXPOSURE DURING PREGNANCY [None]
  - PERICARDIAL EFFUSION [None]
  - AORTIC VALVE INCOMPETENCE [None]
  - RIGHT ATRIAL DILATATION [None]
  - DILATATION VENTRICULAR [None]
  - CONGENITAL MITRAL VALVE INCOMPETENCE [None]
  - ATRIAL SEPTAL DEFECT [None]
  - HEART DISEASE CONGENITAL [None]
  - MITRAL VALVE STENOSIS [None]
  - MATERNAL DRUGS AFFECTING FOETUS [None]
  - TRICUSPID VALVE INCOMPETENCE [None]
